FAERS Safety Report 7190801-1 (Version None)
Quarter: 2010Q4

REPORT INFORMATION
  Report Type: 
  Country: None (occurrence: None)
  Receive Date: 20101222
  Receipt Date: 20101222
  Transmission Date: 20110411
  Serious: No
  Sender: FDA-Public Use
  Company Number: None

PATIENT
  Sex: Female
  Weight: 92.0802 kg

DRUGS (2)
  1. CELEXA [Suspect]
     Indication: DEPRESSION
     Dosage: 20MG ONCE DAILY ORAL - 047
     Route: 048
     Dates: start: 20101016, end: 20101020
  2. EFFEXOR XR [Suspect]
     Indication: DEPRESSION
     Dosage: 75MG ONCE DAILY ORAL - 047
     Route: 048
     Dates: start: 20081212, end: 20090224

REACTIONS (2)
  - DIZZINESS [None]
  - PANIC ATTACK [None]
